FAERS Safety Report 24157213 (Version 2)
Quarter: 2024Q3

REPORT INFORMATION
  Report Type: Spontaneous
  Country: US (occurrence: US)
  Receive Date: 20240731
  Receipt Date: 20240810
  Transmission Date: 20241016
  Serious: No
  Sender: SANOFI AVENTIS
  Company Number: US-SA-SAC20240726001298

PATIENT
  Sex: Female
  Weight: 30.84 kg

DRUGS (1)
  1. DUPIXENT [Suspect]
     Active Substance: DUPILUMAB
     Indication: Dermatitis atopic
     Dosage: 300 MG, Q4W
     Route: 058

REACTIONS (6)
  - Dermatitis atopic [Unknown]
  - Product dose omission issue [Unknown]
  - Rash [Not Recovered/Not Resolved]
  - Therapeutic response decreased [Not Recovered/Not Resolved]
  - Off label use [Unknown]
  - Incorrect dose administered [Unknown]
